FAERS Safety Report 15411006 (Version 1)
Quarter: 2018Q3

REPORT INFORMATION
  Report Type: Report from Study
  Country: None (occurrence: AR)
  Receive Date: 20180921
  Receipt Date: 20180921
  Transmission Date: 20181010
  Serious: Yes (Other)
  Sender: FDA-Public Use
  Company Number: AR-ABBVIE-18K-007-2493599-00

PATIENT
  Age: 52 Year
  Sex: Female
  Weight: 88 kg

DRUGS (1)
  1. HUMIRA [Suspect]
     Active Substance: ADALIMUMAB
     Indication: HIDRADENITIS
     Route: 058
     Dates: start: 20180827

REACTIONS (6)
  - Injection site bruising [Unknown]
  - Skin haemorrhage [Unknown]
  - Incorrect dose administered [Unknown]
  - Hidradenitis [Not Recovered/Not Resolved]
  - Wrong technique in product usage process [Unknown]
  - Hidradenitis [Unknown]

NARRATIVE: CASE EVENT DATE: 2018
